FAERS Safety Report 21173874 (Version 1)
Quarter: 2022Q3

REPORT INFORMATION
  Report Type: Spontaneous
  Country: US (occurrence: US)
  Receive Date: 20220804
  Receipt Date: 20220804
  Transmission Date: 20221026
  Serious: No
  Sender: FDA-Public Use
  Company Number: US-PERRIGO-22US008102

PATIENT
  Age: 62 Year
  Sex: Male
  Weight: 120.18 kg

DRUGS (2)
  1. LORATADINE [Suspect]
     Active Substance: LORATADINE
     Indication: Seasonal allergy
     Dosage: 10 MG, Q 20-24HRS
     Route: 048
     Dates: start: 20220530, end: 20220603
  2. LORATADINE [Suspect]
     Active Substance: LORATADINE
     Indication: Seasonal allergy

REACTIONS (5)
  - Swelling face [Recovered/Resolved]
  - Paraesthesia oral [Recovered/Resolved]
  - Lip swelling [Recovered/Resolved]
  - Lip pain [Not Recovered/Not Resolved]
  - Aphthous ulcer [Not Recovered/Not Resolved]

NARRATIVE: CASE EVENT DATE: 20220601
